FAERS Safety Report 4861449-6 (Version None)
Quarter: 2005Q4

REPORT INFORMATION
  Report Type: 
  Country: None (occurrence: None)
  Receive Date: 20051220
  Receipt Date: 20051212
  Transmission Date: 20060501
  Serious: Yes (Other)
  Sender: FDA-Public Use
  Company Number: PHBS2005JP18446

PATIENT
  Age: 30 Year
  Sex: Female

DRUGS (2)
  1. NEORAL [Suspect]
     Indication: SYSTEMIC LUPUS ERYTHEMATOSUS
     Dosage: 75 MG/D
     Route: 048
     Dates: start: 20040301
  2. PREDONINE [Concomitant]
     Dosage: 20 MG/D
     Route: 048
     Dates: start: 20040301

REACTIONS (1)
  - DERMATOFIBROSIS LENTICULARIS DISSEMINATA [None]
